FAERS Safety Report 6266237-4 (Version None)
Quarter: 2009Q3

REPORT INFORMATION
  Report Type: 
  Country: None (occurrence: None)
  Receive Date: 20090713
  Receipt Date: 20090701
  Transmission Date: 20100115
  Serious: Yes (Hospitalization, Other)
  Sender: FDA-Public Use
  Company Number: US-PFIZER INC-2009235824

PATIENT
  Sex: Female
  Weight: 86.182 kg

DRUGS (1)
  1. AZITHROMYCIN [Suspect]
     Indication: TOOTH INFECTION
     Dosage: 250 MG, 1X/DAY
     Route: 048
     Dates: start: 20081212, end: 20081216

REACTIONS (5)
  - CATARACT TRAUMATIC [None]
  - CERVICAL VERTEBRAL FRACTURE [None]
  - HEART RATE IRREGULAR [None]
  - ROAD TRAFFIC ACCIDENT [None]
  - SYNCOPE [None]
